FAERS Safety Report 8234359-4 (Version None)
Quarter: 2012Q1

REPORT INFORMATION
  Report Type: 
  Country: None (occurrence: None)
  Receive Date: 20120326
  Receipt Date: 20120321
  Transmission Date: 20120608
  Serious: Yes (Other)
  Sender: FDA-Public Use
  Company Number: US-JNJFOC-20120201910

PATIENT
  Sex: Female
  Weight: 56.7 kg

DRUGS (1)
  1. DOXIL [Suspect]
     Indication: OVARIAN CANCER RECURRENT
     Route: 042
     Dates: start: 20110301, end: 20110701

REACTIONS (2)
  - OVARIAN CANCER RECURRENT [None]
  - MASS [None]
